FAERS Safety Report 18441550 (Version 1)
Quarter: 2020Q4

REPORT INFORMATION
  Report Type: Spontaneous
  Country: DK (occurrence: DK)
  Receive Date: 20201029
  Receipt Date: 20201029
  Transmission Date: 20210114
  Serious: Yes (Other)
  Sender: FDA-Public Use
  Company Number: NVSC2020DK289579

PATIENT

DRUGS (5)
  1. OCTREOTIDE. [Suspect]
     Active Substance: OCTREOTIDE
     Indication: CONGENITAL HYPERINSULINAEMIC HYPOGLYCAEMIA
     Dosage: 20 UG/KG, QD
     Route: 065
  2. DIAZOXIDE [Suspect]
     Active Substance: DIAZOXIDE
     Indication: CONGENITAL HYPERINSULINAEMIC HYPOGLYCAEMIA
     Dosage: 20.0 MG/KG, QD
     Route: 065
  3. OCTREOTIDE. [Suspect]
     Active Substance: OCTREOTIDE
  4. GLUCAGON. [Concomitant]
     Active Substance: GLUCAGON
     Indication: CONGENITAL HYPERINSULINAEMIC HYPOGLYCAEMIA
     Dosage: 3 UG/KG, QH
     Route: 065
  5. OCTREOTIDE. [Suspect]
     Active Substance: OCTREOTIDE

REACTIONS (2)
  - Cardiomyopathy [Unknown]
  - Product use in unapproved indication [Unknown]
